FAERS Safety Report 20280070 (Version 2)
Quarter: 2022Q3

REPORT INFORMATION
  Report Type: Other
  Country: FR (occurrence: None)
  Receive Date: 20220103
  Receipt Date: 20220927
  Transmission Date: 20221027
  Serious: Yes (Life-Threatening)
  Sender: FDA-Public Use
  Company Number: FR-ROCHE-2993615

PATIENT

DRUGS (5)
  1. RITUXIMAB [Suspect]
     Active Substance: RITUXIMAB
     Indication: Immunosuppression
     Route: 065
  2. CYCLOPHOSPHAMIDE [Suspect]
     Active Substance: CYCLOPHOSPHAMIDE
     Indication: Immunosuppression
     Route: 065
  3. LAPINE T-LYMPHOCYTE IMMUNE GLOBULIN [Suspect]
     Active Substance: LAPINE T-LYMPHOCYTE IMMUNE GLOBULIN
     Indication: Immunosuppression
     Route: 065
  4. HUMAN IMMUNOGLOBULIN G [Suspect]
     Active Substance: HUMAN IMMUNOGLOBULIN G
     Indication: Immunosuppression
     Route: 065
  5. ECULIZUMAB [Suspect]
     Active Substance: ECULIZUMAB
     Indication: Immunosuppression
     Route: 065

REACTIONS (1)
  - Device related infection [Unknown]
